FAERS Safety Report 13129832 (Version 1)
Quarter: 2017Q1

REPORT INFORMATION
  Report Type: Spontaneous
  Country: US (occurrence: US)
  Receive Date: 20170118
  Receipt Date: 20170118
  Transmission Date: 20170428
  Serious: No
  Sender: FDA-Public Use
  Company Number: None

PATIENT
  Age: 26 Year
  Sex: Female
  Weight: 67.5 kg

DRUGS (7)
  1. ATIVAN [Concomitant]
     Active Substance: LORAZEPAM
  2. DEPAKOTE [Concomitant]
     Active Substance: DIVALPROEX SODIUM
  3. LACOSAMIDE. [Suspect]
     Active Substance: LACOSAMIDE
     Indication: EPILEPSY
     Dates: start: 20101215, end: 20111017
  4. VALERIAN ROOT [Concomitant]
     Active Substance: VALERIAN
  5. VICODIN [Concomitant]
     Active Substance: ACETAMINOPHEN\HYDROCODONE BITARTRATE
  6. MULTIVITAMIN [Concomitant]
     Active Substance: VITAMINS
  7. PREGABALIN. [Suspect]
     Active Substance: PREGABALIN
     Indication: NEUROPATHY PERIPHERAL
     Dates: start: 20120111, end: 20120613

REACTIONS (4)
  - Visual impairment [None]
  - Drug ineffective [None]
  - Syncope [None]
  - Cerebrovascular accident [None]

NARRATIVE: CASE EVENT DATE: 20101215
